FAERS Safety Report 9801306 (Version 1)
Quarter: 2014Q1

REPORT INFORMATION
  Report Type: Spontaneous
  Country: US (occurrence: US)
  Receive Date: 20140107
  Receipt Date: 20140107
  Transmission Date: 20141002
  Serious: No
  Sender: FDA-Public Use
  Company Number: US-GLAXOSMITHKLINE-A1044895A

PATIENT
  Age: 56 Year
  Sex: Female

DRUGS (6)
  1. BENLYSTA [Suspect]
     Indication: SYSTEMIC LUPUS ERYTHEMATOSUS
     Dosage: 10MGK MONTHLY
     Route: 042
     Dates: start: 201204
  2. SYNTHROID [Concomitant]
  3. CYMBALTA [Concomitant]
  4. PROZAC [Concomitant]
  5. UNKNOWN MEDICATION [Concomitant]
  6. KLONOPIN [Concomitant]

REACTIONS (3)
  - Upper respiratory tract infection [Not Recovered/Not Resolved]
  - Rhinorrhoea [Unknown]
  - Rash [Unknown]
